FAERS Safety Report 4304438-2 (Version None)
Quarter: 2004Q1

REPORT INFORMATION
  Report Type: 
  Country: None (occurrence: None)
  Receive Date: 20040224
  Receipt Date: 20040211
  Transmission Date: 20041129
  Serious: Yes (Hospitalization, Other)
  Sender: FDA-Public Use
  Company Number: 2004008864

PATIENT
  Age: 31 Year
  Sex: Male

DRUGS (2)
  1. GEODON [Suspect]
     Indication: PERSONALITY DISORDER
     Dosage: 780 MG, ORAL
     Route: 048
     Dates: start: 20030401
  2. VENLAFAXINE (VENLAFAXINE) [Concomitant]

REACTIONS (6)
  - ELECTROCARDIOGRAM PR PROLONGATION [None]
  - HEART RATE INCREASED [None]
  - INTENTIONAL OVERDOSE [None]
  - LEGAL PROBLEM [None]
  - SOMNOLENCE [None]
  - SUICIDE ATTEMPT [None]
